FAERS Safety Report 7744586-8 (Version None)
Quarter: 2011Q3

REPORT INFORMATION
  Report Type: 
  Country: None (occurrence: None)
  Receive Date: 20110912
  Receipt Date: 20110907
  Transmission Date: 20111222
  Serious: Yes (Hospitalization, Other)
  Sender: FDA-Public Use
  Company Number: US-BAYER-2011-084475

PATIENT
  Sex: Female

DRUGS (1)
  1. BETASERON [Suspect]
     Indication: RELAPSING-REMITTING MULTIPLE SCLEROSIS
     Dosage: 0.25 MG, UNK

REACTIONS (6)
  - FATIGUE [None]
  - GASTROINTESTINAL ULCER [None]
  - WEIGHT DECREASED [None]
  - DEPRESSION [None]
  - CONVULSION [None]
  - ABDOMINAL PAIN UPPER [None]
